FAERS Safety Report 23846154 (Version 3)
Quarter: 2024Q2

REPORT INFORMATION
  Report Type: Spontaneous
  Country: US (occurrence: None)
  Receive Date: 20240512
  Receipt Date: 20240628
  Transmission Date: 20240716
  Serious: Yes (Other)
  Sender: FDA-Public Use
  Company Number: 2024A096866

PATIENT
  Age: 69 Year
  Sex: Male
  Weight: 64.6 kg

DRUGS (20)
  1. BYDUREON BCISE [Suspect]
     Active Substance: EXENATIDE
     Route: 058
     Dates: start: 202403
  2. BYDUREON [Suspect]
     Active Substance: EXENATIDE
  3. ALFUZOSIN HYDROCHLORIDE [Concomitant]
     Active Substance: ALFUZOSIN HYDROCHLORIDE
     Route: 048
  4. AMLODIPINE BESYLATE [Concomitant]
     Active Substance: AMLODIPINE BESYLATE
     Route: 048
  5. ASPIRIN [Concomitant]
     Active Substance: ASPIRIN
     Route: 048
  6. ATORVASTATIN CALCIUM [Concomitant]
     Active Substance: ATORVASTATIN CALCIUM
     Route: 048
  7. CARVEDILOL [Concomitant]
     Active Substance: CARVEDILOL
     Route: 048
  8. MINERALS\VITAMINS [Concomitant]
     Active Substance: MINERALS\VITAMINS
     Route: 048
  9. CLOPIDOGREL BISULFATE [Concomitant]
     Active Substance: CLOPIDOGREL BISULFATE
     Route: 048
  10. DOCUSATE SODIUM [Concomitant]
     Active Substance: DOCUSATE SODIUM
     Route: 048
  11. FUROSEMIDE [Concomitant]
     Active Substance: FUROSEMIDE
     Route: 048
  12. HUMULIN R [Concomitant]
     Active Substance: INSULIN HUMAN
     Route: 058
  13. JARDIANCE [Concomitant]
     Active Substance: EMPAGLIFLOZIN
     Route: 048
  14. LEVETIRACETAM [Concomitant]
     Active Substance: LEVETIRACETAM
     Route: 048
  15. LOSARTAN POTASSIUM [Concomitant]
     Active Substance: LOSARTAN POTASSIUM
     Route: 048
  16. METFORMIN HYDROCHLORIDE [Concomitant]
     Active Substance: METFORMIN HYDROCHLORIDE
     Route: 048
  17. NITROGLYCERIN [Concomitant]
     Active Substance: NITROGLYCERIN
     Route: 048
  18. PANTOPRAZOLE SODIUM [Concomitant]
     Active Substance: PANTOPRAZOLE SODIUM
     Route: 048
  19. PHENYTOIN [Concomitant]
     Active Substance: PHENYTOIN
     Route: 048
  20. VITAMIN D3 [Concomitant]
     Active Substance: CHOLECALCIFEROL
     Route: 048

REACTIONS (11)
  - Gastrointestinal disorder [Recovered/Resolved]
  - Hypoglycaemia [Recovered/Resolved]
  - Hyperglycaemia [Recovered/Resolved]
  - Blood glucose increased [Not Recovered/Not Resolved]
  - Diarrhoea [Unknown]
  - Weight increased [Unknown]
  - Diabetes mellitus inadequate control [Unknown]
  - Drug ineffective [Unknown]
  - Wrong technique in device usage process [Unknown]
  - Incorrect dose administered by device [Unknown]
  - Device malfunction [Unknown]

NARRATIVE: CASE EVENT DATE: 20240301
